FAERS Safety Report 7308369-5 (Version None)
Quarter: 2011Q1

REPORT INFORMATION
  Report Type: 
  Country: None (occurrence: None)
  Receive Date: 20110223
  Receipt Date: 20110217
  Transmission Date: 20110831
  Serious: Yes (Other)
  Sender: FDA-Public Use
  Company Number: B0701524A

PATIENT
  Age: 28 Year
  Sex: Female

DRUGS (3)
  1. ZIAGEN [Suspect]
     Indication: HIV INFECTION
     Dosage: 600MG PER DAY
     Route: 048
     Dates: start: 20110115, end: 20110128
  2. EPIVIR [Suspect]
     Indication: HIV INFECTION
     Dosage: 300MG PER DAY
     Route: 048
     Dates: start: 20110115, end: 20110128
  3. NEVIRAPINE [Concomitant]
     Indication: HIV INFECTION
     Dosage: 1.8G PER DAY
     Route: 048
     Dates: start: 20110115, end: 20110128

REACTIONS (2)
  - PRODUCT QUALITY ISSUE [None]
  - DERMATITIS ALLERGIC [None]
